FAERS Safety Report 7269011-5 (Version None)
Quarter: 2011Q1

REPORT INFORMATION
  Report Type: 
  Country: None (occurrence: None)
  Receive Date: 20110202
  Receipt Date: 20110121
  Transmission Date: 20110831
  Serious: Yes (Hospitalization)
  Sender: FDA-Public Use
  Company Number: US-BIOGENIDEC-2010BI040461

PATIENT
  Age: 55 Year
  Sex: Female
  Weight: 104 kg

DRUGS (20)
  1. MUCINEX [Concomitant]
  2. VIVELLE [Concomitant]
  3. LASIX [Concomitant]
  4. MOTRIN [Concomitant]
  5. SEREVENT [Concomitant]
  6. PROTONIX [Concomitant]
  7. VITAMIN B-12 [Concomitant]
  8. NAPROSYN [Concomitant]
  9. TYSABRI [Suspect]
     Indication: MULTIPLE SCLEROSIS
     Route: 042
     Dates: start: 20101026
  10. AMBIEN [Concomitant]
  11. SCOPOLAMINE [Concomitant]
  12. FLEXOR PAIN PATCH [Concomitant]
  13. DETROL LA [Concomitant]
  14. VITAMIN D [Concomitant]
  15. DRAMAMINE [Concomitant]
  16. CLARITIN [Concomitant]
  17. CORRECTOL [Concomitant]
  18. PEPTO-BISMOL [Concomitant]
  19. HYZAAR [Concomitant]
  20. DARVOCET-N 100 [Concomitant]

REACTIONS (5)
  - IRRITABLE BOWEL SYNDROME [None]
  - HYPERSENSITIVITY [None]
  - HERPES ZOSTER [None]
  - POOR VENOUS ACCESS [None]
  - DYSURIA [None]
